FAERS Safety Report 6577158-1 (Version None)
Quarter: 2010Q1

REPORT INFORMATION
  Report Type: 
  Country: None (occurrence: None)
  Receive Date: 20100210
  Receipt Date: 20100128
  Transmission Date: 20100710
  Serious: Yes (Other)
  Sender: FDA-Public Use
  Company Number: PHHY2010US04909

PATIENT

DRUGS (1)
  1. RECLAST [Suspect]
     Dosage: UNK

REACTIONS (1)
  - NEPHROPATHY TOXIC [None]
